FAERS Safety Report 7771548-7 (Version None)
Quarter: 2011Q3

REPORT INFORMATION
  Report Type: 
  Country: None (occurrence: None)
  Receive Date: 20110922
  Receipt Date: 20110223
  Transmission Date: 20111222
  Serious: No
  Sender: FDA-Public Use
  Company Number: US-ASTRAZENECA-2007UW01922

PATIENT
  Age: 55 Year
  Sex: Female
  Weight: 109.8 kg

DRUGS (14)
  1. SEROQUEL [Suspect]
     Indication: INSOMNIA
     Dosage: 300 MG - 800 MG AT BEDTIME
     Route: 048
     Dates: start: 20030202
  2. ATENOLOL [Concomitant]
     Dates: start: 20060406
  3. SEROQUEL [Suspect]
     Indication: DEPRESSION
     Dosage: 300 MG - 800 MG AT BEDTIME
     Route: 048
     Dates: start: 20030202
  4. SEROQUEL [Suspect]
     Route: 048
     Dates: start: 20030701, end: 20060401
  5. SEROQUEL [Suspect]
     Route: 048
     Dates: start: 20030718
  6. LIPITOR [Concomitant]
     Dates: start: 20060406
  7. SEROQUEL [Suspect]
     Indication: SLEEP DISORDER
     Dosage: 300 MG - 800 MG AT BEDTIME
     Route: 048
     Dates: start: 20030202
  8. SEROQUEL [Suspect]
     Route: 048
     Dates: start: 20030701, end: 20060401
  9. SEROQUEL [Suspect]
     Route: 048
     Dates: start: 20030701, end: 20060401
  10. PAXIL [Concomitant]
     Route: 048
     Dates: start: 20030202
  11. REMERON [Concomitant]
     Dates: end: 20030718
  12. SEROQUEL [Suspect]
     Route: 048
     Dates: start: 20030718
  13. SEROQUEL [Suspect]
     Route: 048
     Dates: start: 20030718
  14. ZYPREXA [Concomitant]
     Dates: start: 20010101, end: 20030101

REACTIONS (6)
  - BLOOD CHOLESTEROL INCREASED [None]
  - DIABETES MELLITUS INADEQUATE CONTROL [None]
  - TYPE 2 DIABETES MELLITUS [None]
  - UTERINE DISORDER [None]
  - BLOOD TRIGLYCERIDES INCREASED [None]
  - HYPERLIPIDAEMIA [None]
